FAERS Safety Report 5669473-0 (Version None)
Quarter: 2008Q1

REPORT INFORMATION
  Report Type: 
  Country: None (occurrence: None)
  Receive Date: 20080312
  Receipt Date: 20080312
  Transmission Date: 20080703
  Serious: Yes (Other)
  Sender: FDA-Public Use
  Company Number: None

PATIENT
  Age: 59 Year
  Sex: Female
  Weight: 53 kg

DRUGS (1)
  1. VYTORIN [Suspect]
     Indication: HYPERLIPIDAEMIA
     Dosage: 10MG EZETIMIBE 40 MG SIMVASTA QDAY PO
     Route: 048
     Dates: start: 20060101, end: 20080128

REACTIONS (1)
  - PLATELET COUNT DECREASED [None]
